FAERS Safety Report 23760403 (Version 1)
Quarter: 2024Q2

REPORT INFORMATION
  Report Type: Spontaneous
  Country: GB (occurrence: GB)
  Receive Date: 20240419
  Receipt Date: 20240419
  Transmission Date: 20240716
  Serious: Yes (Other)
  Sender: FDA-Public Use
  Company Number: None

PATIENT
  Age: 48 Year
  Sex: Female
  Weight: 71 kg

DRUGS (3)
  1. CEPHALEXIN [Suspect]
     Active Substance: CEPHALEXIN
     Indication: Ill-defined disorder
     Dosage: UNK
     Route: 065
     Dates: start: 20240329
  2. CEPHALEXIN [Suspect]
     Active Substance: CEPHALEXIN
     Dosage: UNK
     Route: 065
     Dates: start: 20240402
  3. CEPHALEXIN [Suspect]
     Active Substance: CEPHALEXIN
     Dosage: UNK, TID,(ONE CAPSULE TO BE TAKEN THREE TIMES A DAY )
     Route: 065
     Dates: start: 20240328, end: 20240404

REACTIONS (2)
  - Dyspnoea [Recovered/Resolved]
  - Throat tightness [Unknown]

NARRATIVE: CASE EVENT DATE: 20240329
